FAERS Safety Report 4482068-X (Version None)
Quarter: 2004Q3

REPORT INFORMATION
  Report Type: 
  Country: None (occurrence: None)
  Receive Date: 20040921
  Receipt Date: 20310827
  Transmission Date: 20050211
  Serious: Yes (Hospitalization)
  Sender: FDA-Public Use
  Company Number: 163-20785-03060903(1)

PATIENT
  Age: 77 Year
  Sex: Female

DRUGS (4)
  1. THALOMID [Suspect]
     Indication: MULTIPLE MYELOMA
     Dosage: 100 - 200  MG, DAILY, ORAL
     Route: 048
     Dates: start: 20030117, end: 20030201
  2. THALOMID [Suspect]
     Indication: MULTIPLE MYELOMA
     Dosage: 100 - 200  MG, DAILY, ORAL
     Route: 048
     Dates: start: 20030201, end: 20030602
  3. ZOMETA [Concomitant]
  4. PROCRIT (ERYTHROPOIETIN) [Concomitant]

REACTIONS (3)
  - BRADYCARDIA [None]
  - RASH [None]
  - SYNCOPE [None]
